FAERS Safety Report 23829509 (Version 2)
Quarter: 2024Q2

REPORT INFORMATION
  Report Type: Spontaneous
  Country: BE (occurrence: BE)
  Receive Date: 20240508
  Receipt Date: 20240514
  Transmission Date: 20240716
  Serious: Yes (Life-Threatening, Hospitalization, Other)
  Sender: FDA-Public Use
  Company Number: BE-MLMSERVICE-20240419-PI014640-00336-2

PATIENT
  Age: 87 Year
  Sex: Male
  Weight: 95.4 kg

DRUGS (10)
  1. RAMIPRIL [Suspect]
     Active Substance: RAMIPRIL
     Indication: Heart failure with reduced ejection fraction
     Dosage: STRENGTH 5 MG
     Route: 048
  2. ACLASTA [Suspect]
     Active Substance: ZOLEDRONIC ACID
     Indication: Lumbar vertebral fracture
     Dosage: ANNUAL INTRAVENOUS ADMINISTRATION/ADMINISTRATION TIME WAS 15 MINUTES
     Route: 042
  3. BUMETANIDE [Suspect]
     Active Substance: BUMETANIDE
     Indication: Ischaemic cardiomyopathy
     Dosage: 1 MG PER DAY PER OS?STRENGTH 2 MG
     Route: 048
  4. BISOPROLOL [Concomitant]
     Active Substance: BISOPROLOL\BISOPROLOL FUMARATE
  5. CALCIUM CARBONATE [Concomitant]
     Active Substance: CALCIUM CARBONATE
  6. ATORVASTATIN [Concomitant]
     Active Substance: ATORVASTATIN
  7. CHOLECALCIFEROL [Concomitant]
     Active Substance: CHOLECALCIFEROL
  8. EDOXABAN [Concomitant]
     Active Substance: EDOXABAN
  9. BUMETANIDE [Suspect]
     Active Substance: BUMETANIDE
     Indication: Heart failure with reduced ejection fraction
     Dosage: 1 MG PER DAY PER OS
     Route: 048
  10. RAMIPRIL [Suspect]
     Active Substance: RAMIPRIL
     Indication: Ischaemic cardiomyopathy
     Dosage: STRENGTH 5 MG

REACTIONS (7)
  - Renal tubular necrosis [Recovering/Resolving]
  - Fall [Recovered/Resolved]
  - Uraemic encephalopathy [Recovering/Resolving]
  - Hyperphosphataemia [Recovered/Resolved]
  - Acute kidney injury [Recovering/Resolving]
  - Hyperkalaemia [Recovered/Resolved]
  - Haemoptysis [Recovered/Resolved]
